FAERS Safety Report 24210355 (Version 1)
Quarter: 2024Q3

REPORT INFORMATION
  Report Type: Spontaneous
  Country: HR (occurrence: HR)
  Receive Date: 20240814
  Receipt Date: 20240814
  Transmission Date: 20241016
  Serious: Yes (Life-Threatening, Hospitalization)
  Sender: ELI LILLY AND CO
  Company Number: None

PATIENT
  Age: 66 Year
  Sex: Male
  Weight: 85 kg

DRUGS (1)
  1. ERBITUX [Suspect]
     Active Substance: CETUXIMAB
     Indication: Colon cancer metastatic
     Dosage: 250 MG/M2, UNKNOWN
     Route: 042
     Dates: start: 20230523, end: 20240705

REACTIONS (4)
  - Musculoskeletal stiffness [Recovering/Resolving]
  - Paraesthesia [Recovering/Resolving]
  - Tremor [Recovering/Resolving]
  - Asthenia [Recovering/Resolving]

NARRATIVE: CASE EVENT DATE: 20240706
